FAERS Safety Report 8021576-1 (Version None)
Quarter: 2011Q4

REPORT INFORMATION
  Report Type: 
  Country: None (occurrence: None)
  Receive Date: 20111230
  Receipt Date: 20111222
  Transmission Date: 20120403
  Serious: Yes (Disabling)
  Sender: FDA-Public Use
  Company Number: 1147027

PATIENT
  Age: 63 Year
  Sex: Female

DRUGS (5)
  1. LIDOCAINE [Suspect]
     Indication: NERVE BLOCK
     Dates: start: 20100114
  2. METAOXEDRIN [Concomitant]
  3. PROPOFOL [Suspect]
     Indication: GENERAL ANAESTHESIA
     Dates: start: 20100114
  4. NAROPIN [Suspect]
     Indication: NERVE BLOCK
     Dates: start: 20100114
  5. FENTANYL [Suspect]
     Indication: GENERAL ANAESTHESIA
     Dates: start: 20100114

REACTIONS (4)
  - SALIVARY HYPERSECRETION [None]
  - HEADACHE [None]
  - MEMORY IMPAIRMENT [None]
  - BLOOD PRESSURE DECREASED [None]
